FAERS Safety Report 9476183 (Version 1)
Quarter: 2013Q3

REPORT INFORMATION
  Report Type: Spontaneous
  Country: BR (occurrence: BR)
  Receive Date: 20130826
  Receipt Date: 20130826
  Transmission Date: 20140515
  Serious: Yes (Hospitalization)
  Sender: FDA-Public Use
  Company Number: BR-SANOFI-AVENTIS-2013SA083515

PATIENT
  Age: 73 Year
  Sex: Female
  Weight: 52 kg

DRUGS (7)
  1. LANTUS [Suspect]
     Indication: TYPE 2 DIABETES MELLITUS
     Dosage: 3ML
     Route: 065
  2. APIDRA [Suspect]
     Indication: TYPE 2 DIABETES MELLITUS
     Route: 058
  3. CLIKSTAR [Concomitant]
     Indication: DEVICE THERAPY
  4. CLIKSTAR [Concomitant]
     Indication: DEVICE THERAPY
  5. ATACAND [Concomitant]
     Indication: BLOOD PRESSURE
     Route: 048
  6. ATENSINA [Concomitant]
     Indication: BLOOD PRESSURE
     Route: 048
     Dates: start: 201102
  7. PURAN T4 [Concomitant]
     Route: 048

REACTIONS (3)
  - Femur fracture [Recovering/Resolving]
  - Pain [Recovering/Resolving]
  - Infection [Recovering/Resolving]
